FAERS Safety Report 9193719 (Version 1)
Quarter: 2013Q1

REPORT INFORMATION
  Report Type: Spontaneous
  Country: BR (occurrence: BR)
  Receive Date: 20130327
  Receipt Date: 20130327
  Transmission Date: 20140127
  Serious: Yes (Other)
  Sender: FDA-Public Use
  Company Number: BR-PFIZER INC-2013097534

PATIENT
  Age: 53 Year
  Sex: Female

DRUGS (5)
  1. LYRICA [Suspect]
     Dosage: 75MG, 2X/DAY
     Route: 048
     Dates: start: 20130306
  2. EFEXOR XR [Suspect]
     Dosage: 75MG, 1X/DAY
     Route: 048
     Dates: start: 20110301
  3. MIRTAZAPINE [Suspect]
     Dosage: UNK
  4. LEVOID [Concomitant]
     Indication: THYROID DISORDER
     Dosage: UNK
  5. RIVOTRIL [Concomitant]
     Dosage: UNK

REACTIONS (4)
  - Intervertebral disc protrusion [Unknown]
  - Arthralgia [Unknown]
  - Ligament sprain [Unknown]
  - Gastritis [Unknown]
